FAERS Safety Report 10721262 (Version 2)
Quarter: 2015Q1

REPORT INFORMATION
  Report Type: Spontaneous
  Country: US (occurrence: US)
  Receive Date: 20150119
  Receipt Date: 20150121
  Transmission Date: 20150721
  Serious: Yes (Hospitalization)
  Sender: FDA-Public Use
  Company Number: US-UNITED THERAPEUTICS-UNT-2014-010902

PATIENT
  Age: 66 Year
  Sex: Female
  Weight: 120.18 kg

DRUGS (3)
  1. REMODULIN [Suspect]
     Active Substance: TREPROSTINIL
     Indication: PULMONARY HYPERTENSION
     Dosage: 0.068 ?G/KG/MIN, CONTINUING
     Route: 041
     Dates: start: 20081212
  2. REMODULIN [Suspect]
     Active Substance: TREPROSTINIL
     Dosage: 0.068 ?G/KG/MIN, CONTINUING
     Route: 041
     Dates: start: 20081212
  3. TRACLEER [Concomitant]
     Active Substance: BOSENTAN\BOSENTAN MONOHYDRATE
     Indication: PRODUCT USED FOR UNKNOWN INDICATION

REACTIONS (10)
  - Device issue [Unknown]
  - Headache [Recovered/Resolved]
  - Drug dose omission [Unknown]
  - Oropharyngeal pain [Unknown]
  - Pain in extremity [Recovered/Resolved]
  - Chest discomfort [Unknown]
  - Dry throat [Unknown]
  - Arthralgia [Recovered/Resolved]
  - Vomiting [Unknown]
  - Cough [Recovered/Resolved]

NARRATIVE: CASE EVENT DATE: 2014
